FAERS Safety Report 6665535-X (Version None)
Quarter: 2010Q2

REPORT INFORMATION
  Report Type: 
  Country: None (occurrence: None)
  Receive Date: 20100402
  Receipt Date: 20100325
  Transmission Date: 20101027
  Serious: Yes (Hospitalization)
  Sender: FDA-Public Use
  Company Number: CN-SANOFI-AVENTIS-2010SA017372

PATIENT

DRUGS (2)
  1. OXALIPLATIN [Suspect]
     Route: 042
     Dates: start: 20100315, end: 20100315
  2. ANALGESICS [Concomitant]
     Indication: CANCER PAIN

REACTIONS (1)
  - ULCER HAEMORRHAGE [None]
